FAERS Safety Report 24388654 (Version 1)
Quarter: 2024Q4

REPORT INFORMATION
  Report Type: Spontaneous
  Country: US (occurrence: US)
  Receive Date: 20241002
  Receipt Date: 20241002
  Transmission Date: 20250114
  Serious: Yes (Other)
  Sender: GUERBET
  Company Number: US-GUERBET / LLC-US-20240156

PATIENT
  Age: 37 Year
  Sex: Female
  Weight: 95 kg

DRUGS (1)
  1. DOTAREM [Suspect]
     Active Substance: GADOTERATE MEGLUMINE
     Indication: Magnetic resonance imaging breast
     Route: 042
     Dates: start: 20240924, end: 20240924

REACTIONS (4)
  - Chest pain [Recovering/Resolving]
  - Rash [Recovering/Resolving]
  - Erythema [Unknown]
  - Product use in unapproved indication [Recovering/Resolving]

NARRATIVE: CASE EVENT DATE: 20240924
